FAERS Safety Report 7166550-2 (Version None)
Quarter: 2010Q4

REPORT INFORMATION
  Report Type: 
  Country: None (occurrence: None)
  Receive Date: 20101216
  Receipt Date: 20101213
  Transmission Date: 20110411
  Serious: Yes (Death, Life-Threatening, Hospitalization)
  Sender: FDA-Public Use
  Company Number: US-SANOFI-AVENTIS-2010SA075353

PATIENT
  Age: 57 Year
  Sex: Female
  Weight: 56.8 kg

DRUGS (11)
  1. DOCETAXEL [Suspect]
     Indication: NON-SMALL CELL LUNG CANCER
     Route: 041
     Dates: start: 20051026, end: 20051026
  2. DOCETAXEL [Suspect]
     Route: 041
     Dates: start: 20060104, end: 20060104
  3. DOCETAXEL [Suspect]
     Route: 041
     Dates: start: 20051116, end: 20051116
  4. DOCETAXEL [Suspect]
     Route: 041
     Dates: start: 20051207, end: 20051207
  5. CETUXIMAB [Suspect]
     Indication: NON-SMALL CELL LUNG CANCER
     Route: 042
     Dates: start: 20051026, end: 20060118
  6. FENTANYL-100 [Concomitant]
     Route: 062
  7. OXYCODONE HCL AND ACETAMINOPHEN [Concomitant]
  8. PHENERGAN [Concomitant]
  9. LEXAPRO [Concomitant]
  10. PROTONIX [Concomitant]
  11. MORPHINE [Concomitant]
     Route: 042

REACTIONS (3)
  - DEEP VEIN THROMBOSIS [None]
  - INTERSTITIAL LUNG DISEASE [None]
  - RESPIRATORY FAILURE [None]
